FAERS Safety Report 8128279-3 (Version None)
Quarter: 2012Q1

REPORT INFORMATION
  Report Type: 
  Country: None (occurrence: None)
  Receive Date: 20120210
  Receipt Date: 20120131
  Transmission Date: 20120608
  Serious: Yes (Hospitalization)
  Sender: FDA-Public Use
  Company Number: US-ROCHE-1038167

PATIENT
  Age: 62 Year
  Sex: Female
  Weight: 59.2 kg

DRUGS (4)
  1. AVASTIN [Suspect]
     Indication: MALIGNANT PERITONEAL NEOPLASM
     Route: 042
     Dates: start: 20110601
  2. CISPLATIN [Suspect]
     Indication: MALIGNANT PERITONEAL NEOPLASM
     Dosage: LAST DOSE ON 13/OCT/2011
     Route: 033
     Dates: start: 20110601
  3. PACLITAXEL [Suspect]
     Route: 033
  4. PACLITAXEL [Suspect]
     Indication: MALIGNANT PERITONEAL NEOPLASM
     Dosage: LAST DOSE ON 19/OCT/2011
     Route: 042
     Dates: start: 20110601

REACTIONS (1)
  - CONVULSION [None]
